FAERS Safety Report 15787461 (Version 1)
Quarter: 2019Q1

REPORT INFORMATION
  Report Type: Spontaneous
  Country: US (occurrence: US)
  Receive Date: 20190103
  Receipt Date: 20190103
  Transmission Date: 20190417
  Serious: No
  Sender: FDA-Public Use
  Company Number: US-MYLANLABS-2018M1091654

PATIENT

DRUGS (3)
  1. CLONIDINE TRANSDERMAL SYSTEM [Suspect]
     Active Substance: CLONIDINE
     Indication: HYPERTENSION
     Dosage: UNK
     Route: 062
     Dates: start: 20181119
  2. CARVEDILOL. [Concomitant]
     Active Substance: CARVEDILOL
     Indication: BLOOD PRESSURE ABNORMAL
     Dosage: 1 DOSAGE FORM, BID
  3. CARVEDILOL. [Concomitant]
     Active Substance: CARVEDILOL
     Dosage: 2 DOSAGE FORM, BID

REACTIONS (2)
  - Blood pressure increased [Not Recovered/Not Resolved]
  - Drug effect delayed [Unknown]

NARRATIVE: CASE EVENT DATE: 2018
